FAERS Safety Report 9999268 (Version 1)
Quarter: 2014Q1

REPORT INFORMATION
  Report Type: Spontaneous
  Country: US (occurrence: None)
  Receive Date: 20140311
  Receipt Date: 20140311
  Transmission Date: 20141002
  Serious: Yes (Other)
  Sender: FDA-Public Use
  Company Number: None

PATIENT
  Age: 47 Year
  Sex: Male
  Weight: 88.45 kg

DRUGS (1)
  1. NORTRIPTYLIN [Suspect]
     Indication: PAIN
     Dosage: 1 PILL  AT BEDTIME TAKEN BY MOUTH
     Route: 048
     Dates: start: 20140308, end: 20140308

REACTIONS (5)
  - Dyspnoea [None]
  - Chest discomfort [None]
  - Sensation of heaviness [None]
  - Chills [None]
  - Tremor [None]
